FAERS Safety Report 14765442 (Version 1)
Quarter: 2018Q2

REPORT INFORMATION
  Report Type: Spontaneous
  Country: GB (occurrence: GB)
  Receive Date: 20180416
  Receipt Date: 20180416
  Transmission Date: 20180711
  Serious: Yes (Other)
  Sender: FDA-Public Use
  Company Number: GB-TEVA-2018-GB-882107

PATIENT
  Age: 8 Year
  Sex: Female

DRUGS (3)
  1. PRED FORTE [Concomitant]
     Active Substance: PREDNISOLONE ACETATE
     Indication: UVEITIS
     Dosage: DROPS THREE TIMES A DAY TO BOTH EYES
     Route: 047
  2. METHOTREXATE. [Concomitant]
     Active Substance: METHOTREXATE
     Indication: UVEITIS
     Route: 048
  3. PREDNISOLONE. [Suspect]
     Active Substance: PREDNISOLONE
     Indication: UVEITIS
     Route: 048

REACTIONS (2)
  - Idiopathic intracranial hypertension [Recovered/Resolved]
  - Steroid withdrawal syndrome [Recovered/Resolved]
